FAERS Safety Report 17034993 (Version 3)
Quarter: 2020Q2

REPORT INFORMATION
  Report Type: Spontaneous
  Country: DE (occurrence: DE)
  Receive Date: 20191115
  Receipt Date: 20200630
  Transmission Date: 20200713
  Serious: Yes (Hospitalization, Other)
  Sender: FDA-Public Use
  Company Number: DE-AUROBINDO-AUR-APL-2019-072652

PATIENT
  Sex: Female

DRUGS (31)
  1. ERGENYL CHRONO [Suspect]
     Active Substance: VALPROIC ACID
     Indication: BIPOLAR DISORDER
     Dosage: UNK ONCE A DAY
     Route: 048
  2. ERGENYL CHRONO [Suspect]
     Active Substance: VALPROIC ACID
     Dosage: 2300 MILLIGRAM, ONCE A DAY
     Route: 065
     Dates: start: 20131206, end: 20140221
  3. QUETIAPINE. [Suspect]
     Active Substance: QUETIAPINE
     Dosage: 200 MILLIGRAM
     Route: 065
  4. QUETIAPINE. [Suspect]
     Active Substance: QUETIAPINE
     Dosage: UNK, 50 ? 200 MG DAILY
     Route: 065
  5. ERGENYL CHRONO [Suspect]
     Active Substance: VALPROIC ACID
     Dosage: 2300 MILLIGRAM, ONCE A DAY
     Route: 065
     Dates: start: 20140715, end: 20140725
  6. VALPROATE SODIUM. [Suspect]
     Active Substance: VALPROATE SODIUM
     Indication: BIPOLAR DISORDER
     Dosage: UNK, ONCE A DAY
     Route: 048
  7. LITHIUM. [Suspect]
     Active Substance: LITHIUM
     Dosage: 900 ? 2250 MG , ONCE A DAY
     Route: 048
  8. VALPROATE SODIUM. [Suspect]
     Active Substance: VALPROATE SODIUM
     Dosage: 2000 MILLIGRAM, ONCE A DAY
     Route: 065
     Dates: start: 20140627, end: 20140715
  9. VALPROIC ACID. [Suspect]
     Active Substance: VALPROIC ACID
     Dosage: UNK
     Route: 048
  10. VALPROIC ACID. [Suspect]
     Active Substance: VALPROIC ACID
     Dosage: 2300 MILLIGRAM, ONCE A DAY
     Route: 065
     Dates: start: 20140222, end: 20140714
  11. AMLODIPINE [Concomitant]
     Active Substance: AMLODIPINE BESYLATE
     Indication: PRODUCT USED FOR UNKNOWN INDICATION
     Dosage: 5 MILLIGRAM, ONCE A DAY
     Route: 065
  12. LAMOTRIGINE. [Concomitant]
     Active Substance: LAMOTRIGINE
     Indication: PRODUCT USED FOR UNKNOWN INDICATION
     Dosage: 100 MILLIGRAM, ONCE A DAY
     Route: 065
  13. LITHIUM. [Suspect]
     Active Substance: LITHIUM
     Indication: BIPOLAR DISORDER
     Dosage: UNK (LOW DOSE)
     Route: 065
  14. VALPROATE SODIUM. [Suspect]
     Active Substance: VALPROATE SODIUM
     Dosage: 1000 ? 0 ? 0 - 1300
     Route: 065
     Dates: start: 20140221
  15. VALPROIC ACID. [Suspect]
     Active Substance: VALPROIC ACID
     Indication: BIPOLAR DISORDER
     Dosage: UNK
     Route: 048
  16. VALPROIC ACID. [Suspect]
     Active Substance: VALPROIC ACID
     Dosage: 1800 MILLIGRAM, ONCE A DAY
     Route: 065
     Dates: start: 201310
  17. NOVORAPID [Concomitant]
     Active Substance: INSULIN ASPART
     Indication: GESTATIONAL DIABETES
     Dosage: 5.5 INTERNATIONAL UNIT (THROUGHOUT THE DAY)
     Route: 058
     Dates: start: 2014
  18. QUETIAPINE. [Suspect]
     Active Substance: QUETIAPINE
     Indication: BIPOLAR DISORDER
     Dosage: UNK
     Route: 065
  19. PANTOPRAZOLE [Concomitant]
     Active Substance: PANTOPRAZOLE
     Indication: PRODUCT USED FOR UNKNOWN INDICATION
     Dosage: 40 MILLIGRAM, ONCE A DAY
     Route: 065
  20. QUETIAPINE. [Suspect]
     Active Substance: QUETIAPINE
     Dosage: UNK
     Route: 065
  21. VALPROIC ACID. [Suspect]
     Active Substance: VALPROIC ACID
     Dosage: UNK, 1300 ? 2500 MG DAILY
     Route: 048
  22. LEVOTHYROXINE. [Concomitant]
     Active Substance: LEVOTHYROXINE
     Indication: PRODUCT USED FOR UNKNOWN INDICATION
     Dosage: 75 MICROGRAM, ONCE A DAY
     Route: 065
  23. ARIPIPRAZOLE. [Concomitant]
     Active Substance: ARIPIPRAZOLE
     Indication: PRODUCT USED FOR UNKNOWN INDICATION
     Dosage: 5 MILLIGRAM, ONCE A DAY
     Route: 065
  24. CITALOPRAM [Concomitant]
     Active Substance: CITALOPRAM HYDROBROMIDE
     Indication: PRODUCT USED FOR UNKNOWN INDICATION
     Dosage: 20 MILLIGRAM, ONCE A DAY
     Route: 065
  25. VALPROIC ACID. [Suspect]
     Active Substance: VALPROIC ACID
     Dosage: 1000- 0-1000
     Route: 065
     Dates: start: 20140520, end: 20140524
  26. INSULIN HUMAN [Concomitant]
     Active Substance: INSULIN HUMAN
     Indication: GESTATIONAL DIABETES
     Dosage: 6 INTERNATIONAL UNIT, ONCE A DAY
     Route: 058
     Dates: start: 2014
  27. QUETIAPINE. [Suspect]
     Active Substance: QUETIAPINE
     Dosage: UNK, 50-100 MG, DAILY
     Route: 048
     Dates: start: 201310
  28. LITHIUM. [Suspect]
     Active Substance: LITHIUM
     Dosage: UNK
     Route: 065
  29. LITHIUM. [Suspect]
     Active Substance: LITHIUM
     Dosage: UNK
     Route: 065
  30. VALPROATE SODIUM. [Suspect]
     Active Substance: VALPROATE SODIUM
     Dosage: 1800 MILLIGRAM, ONCE A DAY
     Route: 048
     Dates: start: 201310
  31. MIRTAZAPINE. [Concomitant]
     Active Substance: MIRTAZAPINE
     Indication: PRODUCT USED FOR UNKNOWN INDICATION
     Dosage: 30 MILLIGRAM, ONCE A DAY
     Route: 065

REACTIONS (19)
  - Diarrhoea [Unknown]
  - Obesity [Unknown]
  - Exposure during pregnancy [Unknown]
  - Blood glucose fluctuation [Unknown]
  - Blood glucose increased [Unknown]
  - Gastric disorder [Unknown]
  - Gestational diabetes [Unknown]
  - Frequent bowel movements [Recovered/Resolved]
  - Sciatica [Unknown]
  - Abdominal pain [Recovered/Resolved]
  - Tremor [Unknown]
  - Constipation [Unknown]
  - Adverse drug reaction [Unknown]
  - Polyhydramnios [Unknown]
  - Abdominal distension [Unknown]
  - Mania [Unknown]
  - Bipolar I disorder [Unknown]
  - Sedation [Unknown]
  - Weight increased [Unknown]

NARRATIVE: CASE EVENT DATE: 2013
